FAERS Safety Report 21779791 (Version 1)
Quarter: 2022Q4

REPORT INFORMATION
  Report Type: Spontaneous
  Country: US (occurrence: US)
  Receive Date: 20221226
  Receipt Date: 20221226
  Transmission Date: 20230112
  Serious: Yes (Other)
  Sender: FDA-Public Use
  Company Number: US-009507513-2212USA008019

PATIENT
  Age: 71 Year
  Sex: Female

DRUGS (3)
  1. KEYTRUDA [Suspect]
     Active Substance: PEMBROLIZUMAB
     Indication: Metastatic malignant melanoma
     Dosage: 200 MG/KG, EVERY 3 WEEKS
     Route: 042
     Dates: start: 201904, end: 201905
  2. TRAMETINIB [Suspect]
     Active Substance: TRAMETINIB
     Indication: Metastatic malignant melanoma
     Dosage: 2 MG, DAILY
     Route: 048
     Dates: start: 201911
  3. TRAMETINIB [Suspect]
     Active Substance: TRAMETINIB
     Dosage: 2 MG, DAILY
     Route: 048
     Dates: start: 202002

REACTIONS (1)
  - Tumour hyperprogression [Unknown]

NARRATIVE: CASE EVENT DATE: 20190501
